FAERS Safety Report 5308114-9 (Version None)
Quarter: 2007Q1

REPORT INFORMATION
  Report Type: 
  Country: None (occurrence: None)
  Receive Date: 20070201
  Receipt Date: 20061227
  Transmission Date: 20070707
  Serious: No
  Sender: FDA-Public Use
  Company Number: 2006PV027463

PATIENT
  Age: 49 Year
  Sex: Female

DRUGS (5)
  1. BYETTA [Suspect]
     Indication: METABOLIC SYNDROME
     Dosage: SEE IMAGE
     Route: 058
     Dates: start: 20061214, end: 20061220
  2. BYETTA [Suspect]
     Indication: METABOLIC SYNDROME
     Dosage: SEE IMAGE
     Route: 058
     Dates: start: 20061221
  3. GLUCOPHAGE [Concomitant]
  4. LEVOXYL [Concomitant]
  5. MULTIVITAMIN [Concomitant]

REACTIONS (7)
  - ABDOMINAL DISTENSION [None]
  - CONSTIPATION [None]
  - DECREASED APPETITE [None]
  - DIARRHOEA [None]
  - ENERGY INCREASED [None]
  - FEELING ABNORMAL [None]
  - NAUSEA [None]
